FAERS Safety Report 24968446 (Version 1)
Quarter: 2025Q1

REPORT INFORMATION
  Report Type: Spontaneous
  Country: US (occurrence: US)
  Receive Date: 20250214
  Receipt Date: 20250214
  Transmission Date: 20250408
  Serious: No
  Sender: BIOGEN
  Company Number: US-BIOGEN-2025BI01300181

PATIENT

DRUGS (5)
  1. TYSABRI [Suspect]
     Active Substance: NATALIZUMAB
     Indication: Product used for unknown indication
     Route: 050
  2. TOPAMAX [Concomitant]
     Active Substance: TOPIRAMATE
     Route: 050
  3. WELLBUTRIN [Concomitant]
     Active Substance: BUPROPION HYDROCHLORIDE
     Route: 050
  4. COPAXONE [Concomitant]
     Active Substance: GLATIRAMER ACETATE
     Route: 050
  5. AUBAGIO [Concomitant]
     Active Substance: TERIFLUNOMIDE
     Route: 050

REACTIONS (3)
  - Cognitive disorder [Unknown]
  - Fatigue [Unknown]
  - Depression [Unknown]
